FAERS Safety Report 5852678-3 (Version None)
Quarter: 2008Q3

REPORT INFORMATION
  Report Type: 
  Country: None (occurrence: None)
  Receive Date: 20080819
  Receipt Date: 20080819
  Transmission Date: 20090109
  Serious: Yes (Hospitalization)
  Sender: FDA-Public Use
  Company Number: None

PATIENT
  Age: 62 Year
  Sex: Male
  Weight: 60.6 kg

DRUGS (2)
  1. PACLITAXEL [Suspect]
     Indication: SMALL CELL LUNG CANCER STAGE UNSPECIFIED
     Dosage: 300 MG ONCE IV
     Route: 042
     Dates: start: 20080625, end: 20080625
  2. CIMETIDINE [Suspect]
     Dosage: 300 MG ONCE IV
     Route: 042
     Dates: start: 20080625, end: 20080625

REACTIONS (1)
  - NODAL ARRHYTHMIA [None]
